FAERS Safety Report 6267245-X (Version None)
Quarter: 2009Q3

REPORT INFORMATION
  Report Type: 
  Country: None (occurrence: None)
  Receive Date: 20090714
  Receipt Date: 20090701
  Transmission Date: 20100115
  Serious: Yes (Other)
  Sender: FDA-Public Use
  Company Number: GB-PFIZER INC-2009234593

PATIENT

DRUGS (2)
  1. CHAMPIX [Suspect]
     Indication: SMOKING CESSATION THERAPY
     Dosage: 0.5 MG, 2X/DAY
     Route: 048
     Dates: start: 20090610, end: 20090610
  2. ALCOHOL [Interacting]

REACTIONS (3)
  - ALCOHOL INTERACTION [None]
  - ALTERED STATE OF CONSCIOUSNESS [None]
  - MEMORY IMPAIRMENT [None]
